FAERS Safety Report 6713326-3 (Version None)
Quarter: 2010Q2

REPORT INFORMATION
  Report Type: 
  Country: None (occurrence: None)
  Receive Date: 20100506
  Receipt Date: 20100426
  Transmission Date: 20101027
  Serious: Yes (Hospitalization)
  Sender: FDA-Public Use
  Company Number: GB-ELI_LILLY_AND_COMPANY-GB201004006831

PATIENT
  Age: 58 Year
  Sex: Male

DRUGS (8)
  1. HUMULIN R [Suspect]
     Indication: DIABETES MELLITUS
     Dosage: UNK, UNKNOWN
     Route: 058
     Dates: start: 20100415
  2. AMLODIPINE [Concomitant]
     Dosage: UNK, UNKNOWN
     Route: 065
  3. BEZAFIBRATE [Concomitant]
     Dosage: UNK, UNKNOWN
     Route: 065
  4. BISOPROLOL FUMARATE [Concomitant]
     Dosage: UNK, UNKNOWN
     Route: 065
  5. ACETAMINOPHEN AND CODEINE PHOSPHATE [Concomitant]
     Dosage: UNK, UNKNOWN
     Route: 065
  6. HUMAN ACTRAPID [Concomitant]
     Dosage: UNK, UNKNOWN
     Route: 065
  7. RAMIPRIL [Concomitant]
     Dosage: UNK, UNKNOWN
     Route: 065
  8. SIMVASTATIN [Concomitant]
     Dosage: UNK, UNKNOWN
     Route: 065

REACTIONS (1)
  - ANAPHYLACTIC REACTION [None]
